FAERS Safety Report 21772452 (Version 2)
Quarter: 2023Q4

REPORT INFORMATION
  Report Type: Spontaneous
  Country: US (occurrence: US)
  Receive Date: 20221223
  Receipt Date: 20231101
  Transmission Date: 20240110
  Serious: No
  Sender: FDA-Public Use
  Company Number: US-SA-SAC20221223000705

PATIENT
  Sex: Male
  Weight: 86.1 kg

DRUGS (4)
  1. DUPIXENT [Suspect]
     Active Substance: DUPILUMAB
     Indication: Dermatitis atopic
     Dosage: 300 MG, QOW
     Route: 058
     Dates: start: 20180821
  2. DUPIXENT [Suspect]
     Active Substance: DUPILUMAB
     Dosage: 300 MG, QM
     Route: 058
  3. IBUPROFEN [Concomitant]
     Active Substance: IBUPROFEN
  4. TYLENOL [Concomitant]
     Active Substance: ACETAMINOPHEN

REACTIONS (3)
  - Dermatitis atopic [Unknown]
  - Intentional product misuse [Unknown]
  - Inappropriate schedule of product administration [Unknown]
